FAERS Safety Report 10882886 (Version 2)
Quarter: 2015Q2

REPORT INFORMATION
  Report Type: Spontaneous
  Country: US (occurrence: US)
  Receive Date: 20150303
  Receipt Date: 20150526
  Transmission Date: 20150821
  Serious: No
  Sender: FDA-Public Use
  Company Number: US-PFIZER INC-2015075351

PATIENT
  Age: 54 Year
  Sex: Female

DRUGS (6)
  1. CYTOMEL [Suspect]
     Active Substance: LIOTHYRONINE SODIUM
     Indication: HYPOTHYROIDISM
  2. TYROSINE [Concomitant]
     Active Substance: TYROSINE
     Dosage: 500 MG, UNK
  3. TRYPTOPHAN /00215101/ [Concomitant]
     Active Substance: TRYPTOPHAN
     Dosage: 500 MG, UNK
  4. S-ADENOSYLMETHIONINE SULFATE P-TOLUENESULFONATE [Concomitant]
     Active Substance: ADEMETIONINE SULFATE TOSILATE
     Dosage: UNK
  5. MULTIVITAMIN AND MINERAL SUPPLEMENT [Concomitant]
     Active Substance: MINERALS\VITAMINS
     Indication: AUTOIMMUNE THYROIDITIS
     Dosage: 15 ?G, 2X/DAY
     Route: 048
     Dates: start: 20150211
  6. CYTOMEL [Suspect]
     Active Substance: LIOTHYRONINE SODIUM
     Indication: AUTOIMMUNE THYROIDITIS
     Dosage: 15 ?G, 2X/DAY
     Route: 048
     Dates: start: 20150211, end: 20150220

REACTIONS (8)
  - Urticaria [Recovered/Resolved]
  - Pain [Recovering/Resolving]
  - Feeling abnormal [Recovered/Resolved]
  - Wheezing [Recovered/Resolved]
  - Thinking abnormal [Recovered/Resolved]
  - Burning sensation [Recovered/Resolved]
  - Pruritus [Recovered/Resolved]
  - Arthralgia [Not Recovered/Not Resolved]

NARRATIVE: CASE EVENT DATE: 20150211
